FAERS Safety Report 23662940 (Version 1)
Quarter: 2024Q1

REPORT INFORMATION
  Report Type: Spontaneous
  Country: GB (occurrence: GB)
  Receive Date: 20240322
  Receipt Date: 20240322
  Transmission Date: 20240410
  Serious: Yes (Other)
  Sender: FDA-Public Use
  Company Number: None

PATIENT
  Age: 77 Year
  Sex: Male
  Weight: 88 kg

DRUGS (16)
  1. AMLODIPINE [Suspect]
     Active Substance: AMLODIPINE BESYLATE
     Route: 065
     Dates: start: 20240201
  2. GLYCOPYRROLATE [Concomitant]
     Active Substance: GLYCOPYRROLATE
     Dosage: DURATION: 30 DAYS
     Dates: start: 20240201, end: 20240302
  3. ATORVASTATIN [Concomitant]
     Active Substance: ATORVASTATIN
     Dosage: AT NIGHT
     Dates: start: 20230707
  4. FELODIPINE [Concomitant]
     Active Substance: FELODIPINE
     Dates: start: 20240315
  5. OMEPRAZOLE [Concomitant]
     Active Substance: OMEPRAZOLE
     Dates: start: 20230707
  6. SERTRALINE [Concomitant]
     Active Substance: SERTRALINE HYDROCHLORIDE
     Dates: start: 20230707
  7. ASPIRIN [Concomitant]
     Active Substance: ASPIRIN
     Dates: start: 20230707
  8. TAMSULOSIN HYDROCHLORIDE [Concomitant]
     Active Substance: TAMSULOSIN HYDROCHLORIDE
     Dates: start: 20230707
  9. TOLTERODINE TARTRATE [Concomitant]
     Active Substance: TOLTERODINE TARTRATE
     Indication: Bladder disorder
     Dosage: DURATION: 28 DAYS
     Dates: start: 20240122, end: 20240219
  10. FERROUS FUMARATE [Concomitant]
     Active Substance: FERROUS FUMARATE
     Dosage: TIME INTERVAL: 0.33333333 DAYS: AS PER DISCHARGE
     Dates: start: 20240315
  11. CARBOCYSTEINE [Concomitant]
     Active Substance: CARBOCYSTEINE
     Indication: Bronchiectasis
     Dosage: TIME INTERVAL: 0.33333333 DAYS
     Dates: start: 20240315
  12. FOLIC ACID [Concomitant]
     Active Substance: FOLIC ACID
     Dosage: DURATION: 28 DAYS
     Dates: start: 20240214, end: 20240313
  13. LACTULOSE [Concomitant]
     Active Substance: LACTULOSE
     Indication: Constipation
     Dosage: TIME INTERVAL: AS NECESSARY: TWICE DAILY WHEN NEEDED
     Dates: start: 20240315
  14. UNSPECIFIED INGREDIENT [Concomitant]
     Active Substance: UNSPECIFIED INGREDIENT
     Dosage: USE AS DIRECTED
     Dates: start: 20240304
  15. CEPHALEXIN [Concomitant]
     Active Substance: CEPHALEXIN
     Dosage: TIME INTERVAL: 0.33333333 DAYS: DURATION: 7 DAYS
     Dates: start: 20240112, end: 20240119
  16. RANOLAZINE [Concomitant]
     Active Substance: RANOLAZINE
     Dosage: TAKE ONE TWICE DAILY
     Dates: start: 20231124

REACTIONS (1)
  - Hallucination [Recovered/Resolved]
